FAERS Safety Report 6332539-6 (Version None)
Quarter: 2009Q3

REPORT INFORMATION
  Report Type: 
  Country: None (occurrence: None)
  Receive Date: 20090828
  Receipt Date: 20090821
  Transmission Date: 20100115
  Serious: Yes (Hospitalization)
  Sender: FDA-Public Use
  Company Number: FR-B.I. PHARMACEUTICALS,INC./RIDGEFIELD-2009-FF-00573FF

PATIENT
  Sex: Female

DRUGS (10)
  1. SIFROL [Suspect]
     Indication: RESTLESS LEGS SYNDROME
     Dosage: 0.36 MG
     Route: 048
     Dates: end: 20090722
  2. EFFERALGAN CODEINE [Concomitant]
     Route: 048
     Dates: end: 20090722
  3. EUPRESSYL [Concomitant]
     Indication: HYPERTENSION
     Dosage: 120 MG
     Route: 048
     Dates: end: 20090722
  4. TAHOR [Concomitant]
     Indication: HYPERCHOLESTEROLAEMIA
     Dosage: 20 MG
     Route: 048
     Dates: end: 20090722
  5. INIPOMP [Concomitant]
     Dosage: 20 MG
     Route: 048
     Dates: end: 20090722
  6. TAREG [Concomitant]
     Indication: HYPERTENSION
     Dosage: 160 MG
     Route: 048
     Dates: end: 20090722
  7. LEVOTHYROX [Concomitant]
     Dosage: 75 MCG
  8. SPIRIVA [Concomitant]
     Route: 055
  9. NOVOPULMON [Concomitant]
  10. FORLAX [Concomitant]

REACTIONS (5)
  - HEADACHE [None]
  - HYPONATRAEMIA [None]
  - HYPOTENSION [None]
  - MENTAL IMPAIRMENT [None]
  - NAUSEA [None]
